FAERS Safety Report 9723965 (Version 1)
Quarter: 2013Q4

REPORT INFORMATION
  Report Type: Spontaneous
  Country: BR (occurrence: BR)
  Receive Date: 20131202
  Receipt Date: 20131202
  Transmission Date: 20140711
  Serious: Yes (Other)
  Sender: FDA-Public Use
  Company Number: BR-PFIZER INC-2013337033

PATIENT
  Age: 74 Year
  Sex: Female
  Weight: 56 kg

DRUGS (2)
  1. CELEBRA [Suspect]
     Indication: SPINAL PAIN
     Dosage: 200 MG, DAILY, CONTINUOUS USE
     Route: 048
     Dates: start: 20111122
  2. ARADOIS [Concomitant]
     Indication: BLOOD PRESSURE
     Dosage: 1 CAPSULE, 2X/DAY

REACTIONS (1)
  - Arthropathy [Unknown]
